FAERS Safety Report 7973920 (Version 2)
Quarter: 2012Q4

REPORT INFORMATION
  Report Type: Report from Study
  Country: JP (occurrence: JP)
  Receive Date: 20110603
  Receipt Date: 20121002
  Transmission Date: 20130627
  Serious: Yes (Death, Other)
  Sender: FDA-Public Use
  Company Number: JP-CELGENEUS-087-21880-11053228

PATIENT
  Age: 68 Year
  Sex: Male

DRUGS (9)
  1. REVLIMID [Suspect]
     Indication: MULTIPLE MYELOMA
     Dosage: 5 Milligram
     Route: 048
     Dates: start: 20101123, end: 20101202
  2. REVLIMID [Suspect]
     Dosage: 5 Milligram
     Route: 048
     Dates: start: 20101207, end: 20101216
  3. REVLIMID [Suspect]
     Dosage: 5 Milligram
     Route: 048
     Dates: start: 20101227, end: 20110107
  4. DECADRON [Concomitant]
     Indication: MULTIPLE MYELOMA
     Dosage: 40 Milligram
     Route: 041
     Dates: start: 20101115, end: 20101118
  5. DECADRON [Concomitant]
     Dosage: 40 Milligram
     Route: 041
     Dates: start: 20101129, end: 20101130
  6. DECADRON [Concomitant]
     Dosage: 40 Milligram
     Route: 041
     Dates: start: 20101229, end: 20101229
  7. NORVASC [Concomitant]
     Indication: HYPERTENSION
     Dosage: 2.5 Milligram
     Route: 048
     Dates: start: 20101108, end: 20110108
  8. TAKEPRON [Concomitant]
     Indication: PROPHYLAXIS
     Dosage: 15 Milligram
     Route: 048
     Dates: start: 20101108, end: 20110108
  9. VALTREX [Concomitant]
     Indication: PROPHYLAXIS
     Dosage: 500 Milligram
     Route: 048
     Dates: start: 20101108, end: 20110108

REACTIONS (6)
  - Brain stem syndrome [Fatal]
  - Thrombocytopenia [Not Recovered/Not Resolved]
  - Haemorrhage [Recovered/Resolved]
  - Neutropenia [Recovered/Resolved]
  - Sepsis [Recovered/Resolved]
  - Neutropenia [Recovered/Resolved]
